FAERS Safety Report 18001815 (Version 3)
Quarter: 2020Q3

REPORT INFORMATION
  Report Type: Spontaneous
  Country: JO (occurrence: JO)
  Receive Date: 20200709
  Receipt Date: 20200723
  Transmission Date: 20201103
  Serious: Yes (Hospitalization, Other)
  Sender: FDA-Public Use
  Company Number: JO-TOPROL ACQUISITION LLC-2020-TOP-000284

PATIENT
  Sex: Female

DRUGS (1)
  1. METOPROLOL SUCCINATE. [Suspect]
     Active Substance: METOPROLOL SUCCINATE
     Indication: HEART RATE IRREGULAR
     Dosage: 50 MG, BID
     Route: 048

REACTIONS (4)
  - Blood sodium decreased [Not Recovered/Not Resolved]
  - Product commingling [Unknown]
  - Palpitations [Not Recovered/Not Resolved]
  - Blood creatinine increased [Not Recovered/Not Resolved]
